FAERS Safety Report 20008089 (Version 1)
Quarter: 2021Q4

REPORT INFORMATION
  Report Type: Spontaneous
  Country: US (occurrence: US)
  Receive Date: 20211029
  Receipt Date: 20211029
  Transmission Date: 20220303
  Serious: Yes (Hospitalization, Other)
  Sender: FDA-Public Use
  Company Number: US-ROCHE-2941535

PATIENT
  Sex: Female

DRUGS (1)
  1. GAZYVA [Suspect]
     Active Substance: OBINUTUZUMAB
     Indication: Product used for unknown indication
     Route: 042

REACTIONS (9)
  - Infusion related reaction [Unknown]
  - Loss of consciousness [Unknown]
  - Chest pain [Unknown]
  - Nausea [Unknown]
  - Back pain [Unknown]
  - Dyspnoea [Unknown]
  - Pallor [Unknown]
  - Cold sweat [Unknown]
  - Moaning [Unknown]
